FAERS Safety Report 15169775 (Version 5)
Quarter: 2019Q1

REPORT INFORMATION
  Report Type: Spontaneous
  Country: PT (occurrence: PT)
  Receive Date: 20180720
  Receipt Date: 20190208
  Transmission Date: 20190417
  Serious: Yes (Hospitalization, Other)
  Sender: FDA-Public Use
  Company Number: PT-AUROBINDO-AUR-APL-2018-032189

PATIENT

DRUGS (9)
  1. AZITHROMYCIN ANHYDROUS. [Suspect]
     Active Substance: AZITHROMYCIN ANHYDROUS
     Indication: COUGH
     Dosage: UNK
     Route: 065
  2. NIMESULIDE [Suspect]
     Active Substance: NIMESULIDE
     Indication: COUGH
     Dosage: UNK
     Route: 065
  3. BRIVUDINE [Suspect]
     Active Substance: BRIVUDINE
     Indication: LIP ULCERATION
     Dosage: UNK
     Route: 065
  4. BILASTINE [Suspect]
     Active Substance: BILASTINE
     Indication: COUGH
  5. CLARITHROMYCIN. [Suspect]
     Active Substance: CLARITHROMYCIN
     Indication: HEADACHE
  6. BILASTINE [Suspect]
     Active Substance: BILASTINE
     Indication: HEADACHE
     Dosage: UNK
     Route: 065
  7. AZITHROMYCIN ANHYDROUS. [Suspect]
     Active Substance: AZITHROMYCIN ANHYDROUS
     Indication: HEADACHE
  8. CLARITHROMYCIN. [Suspect]
     Active Substance: CLARITHROMYCIN
     Indication: COUGH
     Dosage: UNK
     Route: 065
  9. BILASTINE [Suspect]
     Active Substance: BILASTINE
     Indication: COUGH

REACTIONS (26)
  - Oral discomfort [Recovering/Resolving]
  - Skin lesion [Recovered/Resolved]
  - Conjunctival hyperaemia [Recovered/Resolved]
  - Retinal exudates [Recovering/Resolving]
  - Stevens-Johnson syndrome [Recovered/Resolved]
  - Stomatitis [Recovered/Resolved]
  - Pyrexia [Recovering/Resolving]
  - Lung infiltration [Recovered/Resolved]
  - Mucosal inflammation [Recovered/Resolved]
  - Genital ulceration [Recovered/Resolved]
  - Coagulopathy [Recovered/Resolved]
  - Lip erythema [Recovered/Resolved]
  - Oral mucosa erosion [Recovered/Resolved]
  - Mouth swelling [Recovering/Resolving]
  - Oedema mucosal [Recovered/Resolved]
  - Rash [Recovered/Resolved]
  - Lip oedema [Recovered/Resolved]
  - Enanthema [Recovered/Resolved]
  - Rash papular [Recovered/Resolved]
  - General physical health deterioration [Recovering/Resolving]
  - Lip ulceration [Recovered/Resolved]
  - Oral disorder [Recovered/Resolved]
  - Vulval disorder [Recovered/Resolved]
  - Eye discharge [Recovered/Resolved]
  - Nasal mucosal disorder [Recovered/Resolved]
  - Rash maculovesicular [Recovered/Resolved]
